FAERS Safety Report 7958451-4 (Version None)
Quarter: 2011Q4

REPORT INFORMATION
  Report Type: 
  Country: None (occurrence: None)
  Receive Date: 20111205
  Receipt Date: 20111122
  Transmission Date: 20120403
  Serious: Yes (Hospitalization, Other)
  Sender: FDA-Public Use
  Company Number: IL-ELI_LILLY_AND_COMPANY-IL201111006756

PATIENT
  Age: 72 Year
  Sex: Male

DRUGS (2)
  1. FORTEO [Suspect]
     Dosage: UNK
     Route: 058
     Dates: start: 20111117
  2. FORTEO [Suspect]
     Dosage: UNK
     Route: 058
     Dates: start: 20101101, end: 20101201

REACTIONS (1)
  - TRANSIENT ISCHAEMIC ATTACK [None]
